FAERS Safety Report 8475050-9 (Version None)
Quarter: 2012Q2

REPORT INFORMATION
  Report Type: 
  Country: None (occurrence: None)
  Receive Date: 20120628
  Receipt Date: 20120628
  Transmission Date: 20120825
  Serious: Yes (Other)
  Sender: FDA-Public Use
  Company Number: ES-PFIZER INC-2009US-22019

PATIENT
  Age: 70 Year
  Sex: Female

DRUGS (2)
  1. VERAPAMIL HCL [Suspect]
     Indication: HYPERTENSION
     Dosage: 120 MG, QD
     Route: 048
  2. DOXAZOSIN MESILATE [Concomitant]
     Dosage: UNK

REACTIONS (2)
  - PARKINSONISM [None]
  - TREMOR [None]
